FAERS Safety Report 6178664-4 (Version None)
Quarter: 2009Q2

REPORT INFORMATION
  Report Type: 
  Country: None (occurrence: None)
  Receive Date: 20090430
  Receipt Date: 20090415
  Transmission Date: 20091009
  Serious: Yes (Other)
  Sender: FDA-Public Use
  Company Number: DSU-2009-00891

PATIENT
  Age: 67 Year
  Sex: Female
  Weight: 65.7716 kg

DRUGS (4)
  1. BENICAR [Suspect]
     Indication: HYPERTENSION
     Dosage: 40 MG (20 MG, BID), PER ORAL
     Route: 048
     Dates: start: 20090414
  2. AZOR [Suspect]
     Indication: HYPERTENSION
     Dosage: 5/40 MG (QD), PER ORAL
     Route: 048
     Dates: start: 20090101, end: 20090413
  3. CLONIDINE (CLONIDINE) (0.1 MILLIGRAM) (CLONIDINE) [Concomitant]
  4. PREMARIN (ESTROGENS CONJUGATED) (TABLET) (ESTROGENS CONJUGATED) [Concomitant]

REACTIONS (3)
  - JOINT SWELLING [None]
  - OEDEMA PERIPHERAL [None]
  - WITHDRAWAL HYPERTENSION [None]
